FAERS Safety Report 5381605-0 (Version None)
Quarter: 2007Q3

REPORT INFORMATION
  Report Type: 
  Country: None (occurrence: None)
  Receive Date: 20070709
  Receipt Date: 20070628
  Transmission Date: 20080115
  Serious: Yes (Hospitalization)
  Sender: FDA-Public Use
  Company Number: US-AVENTIS-200712557US

PATIENT
  Sex: Male
  Weight: 71.82 kg

DRUGS (9)
  1. LOVENOX [Suspect]
     Route: 058
     Dates: start: 20070315
  2. LOVENOX [Suspect]
     Route: 058
     Dates: start: 20070315
  3. LOVENOX [Suspect]
     Route: 058
     Dates: start: 20070315
  4. DOCETAXEL [Suspect]
     Dosage: DOSE: UNK
     Dates: start: 20061201, end: 20070301
  5. BEVACIZUMAB [Suspect]
     Dosage: DOSE: UNK
     Dates: start: 20061201, end: 20070301
  6. CLARITIN-D [Concomitant]
     Route: 048
  7. ZANTAC [Concomitant]
     Route: 048
  8. MULTI-VITAMINS [Concomitant]
     Dosage: DOSE: ONE
     Route: 048
  9. COLACE [Concomitant]

REACTIONS (6)
  - DEEP VEIN THROMBOSIS [None]
  - DRUG INEFFECTIVE [None]
  - DYSPNOEA [None]
  - PNEUMONIA [None]
  - PULMONARY EMBOLISM [None]
  - SYNCOPE [None]
